FAERS Safety Report 4653250-3 (Version None)
Quarter: 2005Q2

REPORT INFORMATION
  Report Type: 
  Country: None (occurrence: None)
  Receive Date: 20050503
  Receipt Date: 20050411
  Transmission Date: 20051028
  Serious: Yes (Hospitalization)
  Sender: FDA-Public Use
  Company Number: 2005042063

PATIENT
  Age: 5 Month
  Sex: Male

DRUGS (2)
  1. VIRACEPT [Suspect]
     Indication: HIV INFECTION
     Dosage: ORAL
     Route: 048
     Dates: start: 20040101
  2. LAMIVUDINE AND ZIDOVUDINE [Suspect]
     Indication: HIV INFECTION
     Dosage: ORAL
     Route: 048
     Dates: start: 20040101

REACTIONS (4)
  - CORNEAL OPACITY [None]
  - DRUG EXPOSURE DURING PREGNANCY [None]
  - GLAUCOMA [None]
  - PHOTOPHOBIA [None]
